FAERS Safety Report 8273822-7 (Version None)
Quarter: 2012Q2

REPORT INFORMATION
  Report Type: 
  Country: None (occurrence: None)
  Receive Date: 20120411
  Receipt Date: 20120406
  Transmission Date: 20120825
  Serious: Yes (Other)
  Sender: FDA-Public Use
  Company Number: PHEH2011US04515

PATIENT
  Sex: Female

DRUGS (6)
  1. GILENYA [Suspect]
     Indication: RELAPSING-REMITTING MULTIPLE SCLEROSIS
     Dosage: 0.5 MG, DAILY
     Route: 048
     Dates: start: 20110914, end: 20111017
  2. PERCOCET [Concomitant]
     Indication: PAIN
     Dosage: OXYCODONE HYDROCHLORIDE: 5/ PARACETAMOL: 325
     Route: 048
  3. XANAX [Concomitant]
     Indication: ANXIETY
     Dosage: 1 MG, TID
     Route: 048
  4. PAXIL [Concomitant]
     Indication: DEPRESSION
     Dosage: 30 MG, QD
     Route: 048
  5. ZANAFLEX [Concomitant]
     Indication: MUSCLE SPASTICITY
     Dosage: 2 MG, TID
     Route: 048
  6. NEURONTIN [Concomitant]
     Indication: HYPOAESTHESIA
     Dosage: 300 MG, TID
     Route: 048

REACTIONS (7)
  - VISION BLURRED [None]
  - NAUSEA [None]
  - DELIRIUM [None]
  - CHILLS [None]
  - FATIGUE [None]
  - HOT FLUSH [None]
  - HEADACHE [None]
